FAERS Safety Report 6935747-6 (Version None)
Quarter: 2010Q3

REPORT INFORMATION
  Report Type: 
  Country: None (occurrence: None)
  Receive Date: 20100823
  Receipt Date: 20100817
  Transmission Date: 20110219
  Serious: Yes (Other)
  Sender: FDA-Public Use
  Company Number: US-BAYER-201027448NA

PATIENT
  Age: 20 Year
  Sex: Female

DRUGS (1)
  1. MIRENA [Suspect]
     Indication: CONTRACEPTION
     Dosage: FREQUENCY:CONTINUOUS. (NOTES: FUP MENTIONED STOP DATE AS 22-APR-2010 BUT IT IS NOT CONSISTENT)
     Route: 015
     Dates: start: 20100422, end: 20100622

REACTIONS (2)
  - DEVICE DISLOCATION [None]
  - PAIN [None]
